FAERS Safety Report 8088541-X (Version None)
Quarter: 2012Q1

REPORT INFORMATION
  Report Type: 
  Country: None (occurrence: None)
  Receive Date: 20120128
  Receipt Date: 20110407
  Transmission Date: 20120608
  Serious: No
  Sender: FDA-Public Use
  Company Number: US-ABBOTT-11P-163-0717465-00

PATIENT
  Age: 64 Year
  Sex: Female

DRUGS (9)
  1. TWO DIFFERENT CHEMOTHERAPY INJECTIONS [Concomitant]
     Indication: BONE NEOPLASM MALIGNANT
  2. HUMIRA [Suspect]
     Indication: PSORIASIS
     Dates: start: 20110201, end: 20110311
  3. DIOVAN [Concomitant]
     Indication: BLOOD PRESSURE
  4. PREDNISONE TAB [Concomitant]
     Indication: PSORIASIS
  5. FLEXERIL [Concomitant]
     Indication: MYALGIA
  6. TWO DIFFERENT CHEMOTHERAPY INJECTIONS [Concomitant]
     Indication: BREAST CANCER
     Dosage: AS DOCTOR ORDERED
     Route: 050
  7. HUMIRA [Suspect]
  8. SYNTHROID [Concomitant]
     Indication: HYPOTHYROIDISM
  9. NEXIUM [Concomitant]
     Indication: PRODUCT USED FOR UNKNOWN INDICATION

REACTIONS (1)
  - HEPATIC ENZYME INCREASED [None]
